FAERS Safety Report 19645377 (Version 1)
Quarter: 2021Q3

REPORT INFORMATION
  Report Type: Spontaneous
  Country: US (occurrence: US)
  Receive Date: 20210730
  Receipt Date: 20210730
  Transmission Date: 20211014
  Serious: Yes (Hospitalization)
  Sender: FDA-Public Use
  Company Number: None

PATIENT
  Age: 65 Year
  Sex: Female
  Weight: 69.75 kg

DRUGS (12)
  1. CRANBERRY CAPSULES [Concomitant]
  2. MULTIVITAMIN [Concomitant]
     Active Substance: VITAMINS
  3. ZINC. [Concomitant]
     Active Substance: ZINC
  4. CLOTRIMAZOLE CREAM, EQUATE BRAND, AND ALSO PRESCRIPTION BRAND [Suspect]
     Active Substance: CLOTRIMAZOLE
     Indication: TINEA PEDIS
     Route: 061
     Dates: start: 20210707, end: 20210730
  5. CLOTRIMAZOLE CREAM, EQUATE BRAND, AND ALSO PRESCRIPTION BRAND [Suspect]
     Active Substance: CLOTRIMAZOLE
     Indication: ONYCHOMYCOSIS
     Route: 061
     Dates: start: 20210707, end: 20210730
  6. FISH OIL [Concomitant]
     Active Substance: FISH OIL
  7. CALCIUM [Concomitant]
     Active Substance: CALCIUM
  8. TIROSINT [Concomitant]
     Active Substance: LEVOTHYROXINE SODIUM
  9. L LYSIN CAPSULE [Concomitant]
  10. SELENIUM [Concomitant]
     Active Substance: SELENIUM
  11. CLOBETASOL OINTMENT [Concomitant]
     Active Substance: CLOBETASOL
  12. VITAMIN D3 [Concomitant]
     Active Substance: CHOLECALCIFEROL

REACTIONS (4)
  - Hypoaesthesia [None]
  - Dizziness [None]
  - Hypoaesthesia oral [None]
  - Transient ischaemic attack [None]

NARRATIVE: CASE EVENT DATE: 20210707
